FAERS Safety Report 21593593 (Version 1)
Quarter: 2022Q4

REPORT INFORMATION
  Report Type: Report from Study
  Country: KR (occurrence: KR)
  Receive Date: 20221115
  Receipt Date: 20221115
  Transmission Date: 20230112
  Serious: Yes (Death, Hospitalization)
  Sender: FDA-Public Use
  Company Number: KR-CELLTRION INC.-2022KR014418

PATIENT

DRUGS (9)
  1. INVESTIGATIONAL BIOSIMILARS [Suspect]
     Active Substance: INVESTIGATIONAL BIOSIMILARS
     Indication: Chemotherapy
     Dosage: UNK
     Route: 042
     Dates: start: 20220621, end: 20220802
  2. LOSARTAN [Concomitant]
     Active Substance: LOSARTAN
     Indication: Hypertension
     Dosage: 50 MILLIGRAM, QD
     Route: 048
     Dates: start: 201010
  3. ATORVASTATIN [Concomitant]
     Active Substance: ATORVASTATIN
     Indication: Dyslipidaemia
     Dosage: 20 MILLIGRAM, QD
     Route: 048
     Dates: start: 20180503
  4. CLOPIDOGREL [Concomitant]
     Active Substance: CLOPIDOGREL BISULFATE
     Indication: Cerebral infarction
     Dosage: 75 MILLIGRAM, QD
     Route: 048
     Dates: start: 20180503
  5. NALOXONE HYDROCHLORIDE\OXYCODONE HYDROCHLORIDE [Concomitant]
     Active Substance: NALOXONE HYDROCHLORIDE\OXYCODONE HYDROCHLORIDE
     Indication: Pain management
     Dosage: 5/2.5MG BID
     Route: 048
     Dates: start: 20220609
  6. METOCLOPRAMIDE [Concomitant]
     Active Substance: METOCLOPRAMIDE
     Indication: Prophylaxis of nausea and vomiting
     Dosage: 5 MILLIGRAM, TID
     Route: 048
     Dates: start: 20220621, end: 20220823
  7. APETROL [ASCORBIC ACID;CYPROHEPTADINE HYDROCHLORIDE;NICOTINAMIDE;PYRID [Concomitant]
     Indication: Prophylaxis
     Dosage: 10 ML, QD
     Route: 048
     Dates: start: 20220712, end: 20220823
  8. APETROL [ASCORBIC ACID;CYPROHEPTADINE HYDROCHLORIDE;NICOTINAMIDE;PYRID [Concomitant]
     Indication: Decreased appetite
  9. PLASMA SOLUTION A [Concomitant]
     Indication: Prophylaxis
     Dosage: 1 L, QD
     Route: 042
     Dates: start: 20220823, end: 20220824

REACTIONS (1)
  - Pneumonitis [Fatal]

NARRATIVE: CASE EVENT DATE: 20220823
